FAERS Safety Report 7224974-9 (Version None)
Quarter: 2010Q4

REPORT INFORMATION
  Report Type: 
  Country: None (occurrence: None)
  Receive Date: 20101227
  Receipt Date: 20101217
  Transmission Date: 20110411
  Serious: No
  Sender: FDA-Public Use
  Company Number: CA-144953

PATIENT
  Sex: Female
  Weight: 91.7 kg

DRUGS (3)
  1. WINRHO [Suspect]
     Indication: AUTOIMMUNE THROMBOCYTOPENIA
     Dosage: 54.53 ?G/KG TOTAL)
     Dates: start: 20090928, end: 20090928
  2. IMUNOGLOBULIN [Concomitant]
  3. RITUXIMAB [Concomitant]

REACTIONS (1)
  - INTRAVASCULAR HAEMOLYSIS [None]
